FAERS Safety Report 9324199 (Version 4)
Quarter: 2013Q3

REPORT INFORMATION
  Report Type: Spontaneous
  Country: US (occurrence: None)
  Receive Date: 20130529
  Receipt Date: 20130806
  Transmission Date: 20140515
  Serious: Yes (Hospitalization, Other)
  Sender: FDA-Public Use
  Company Number: 2013SGN00290

PATIENT
  Age: 45 Year
  Sex: Male
  Weight: 110.5 kg

DRUGS (16)
  1. BRENTUXIMAB VEDOTIN [Suspect]
     Indication: NON-HODGKIN^S LYMPHOMA
     Route: 042
     Dates: start: 20130424, end: 20130424
  2. ACETAMINOPHEN (ACETAMINOPHEN) [Concomitant]
  3. LORATIDINE [Concomitant]
  4. ALLOPURINOL [Concomitant]
  5. DECADRON (DEXAMETHASONE ACETATE) [Concomitant]
  6. LORAZEPAM (LORAZEPAM) [Concomitant]
  7. FENTANYL (FENTANYL) [Concomitant]
  8. MULTIPLE VITAMINS (ASCORBIC ACID, ERGOCALCIFEROL, FOLIC ACID, RETINOL, TOCOPHEROL, VITAMIN B NOS) [Concomitant]
  9. OMERPAZOLE (OMEPRAZOLE) [Concomitant]
  10. OXYCODONE (OXYCODONE) [Concomitant]
  11. PREDINISONE (PREDNISONE) [Concomitant]
  12. PROMETHAZINE (PROMETHAZINE) [Concomitant]
  13. RANITIDINE (RANITIDINE HYDROCHLORIDE) [Concomitant]
  14. VITAMIN C (CALCIUM ASCORBATE) [Concomitant]
  15. FRAGMIN (DALTEPARIN SODIUM) [Concomitant]
  16. BACLOFEN (BACLOFEN) [Concomitant]

REACTIONS (6)
  - Hallucination, visual [None]
  - Abdominal pain [None]
  - Nausea [None]
  - Abdominal pain [None]
  - Herpes simplex meningoencephalitis [None]
  - Constipation [None]
